FAERS Safety Report 13948332 (Version 1)
Quarter: 2017Q3

REPORT INFORMATION
  Report Type: Spontaneous
  Country: CO (occurrence: CO)
  Receive Date: 20170908
  Receipt Date: 20170908
  Transmission Date: 20171128
  Serious: Yes (Other)
  Sender: FDA-Public Use
  Company Number: CO-REGENERON PHARMACEUTICALS, INC.-2017-21515

PATIENT

DRUGS (1)
  1. EYLEA [Suspect]
     Active Substance: AFLIBERCEPT
     Indication: DIABETIC RETINOPATHY
     Dosage: UNK
     Dates: start: 20170826

REACTIONS (8)
  - Visual impairment [Unknown]
  - Product use in unapproved indication [Unknown]
  - Vision blurred [Unknown]
  - Off label use [Unknown]
  - Extravasation [Unknown]
  - Anterior chamber inflammation [Unknown]
  - Retinal disorder [Unknown]
  - Intraocular pressure increased [Unknown]

NARRATIVE: CASE EVENT DATE: 20170826
